FAERS Safety Report 5078955-4 (Version None)
Quarter: 2006Q3

REPORT INFORMATION
  Report Type: 
  Country: None (occurrence: None)
  Receive Date: 20060809
  Receipt Date: 20060809
  Transmission Date: 20061208
  Serious: Yes (Hospitalization)
  Sender: FDA-Public Use
  Company Number: None

PATIENT
  Sex: Female
  Weight: 34 kg

DRUGS (3)
  1. CAMPTOSAR [Suspect]
     Dosage: 600 MG
  2. TEMOZOLOMIDE [Suspect]
     Dosage: 600 MG
  3. VINCRISTINE SULFATE [Suspect]
     Dosage: 3.6 MG

REACTIONS (6)
  - DIARRHOEA [None]
  - FAECAL INCONTINENCE [None]
  - HYPOCALCAEMIA [None]
  - HYPOKALAEMIA [None]
  - HYPOMAGNESAEMIA [None]
  - WEIGHT DECREASED [None]
